FAERS Safety Report 16365191 (Version 4)
Quarter: 2021Q3

REPORT INFORMATION
  Report Type: Report from Study
  Country: UG (occurrence: UG)
  Receive Date: 20190529
  Receipt Date: 20210920
  Transmission Date: 20211014
  Serious: Yes (Congenital Anomaly)
  Sender: FDA-Public Use
  Company Number: UG-VIIV HEALTHCARE LIMITED-UG2018GSK159444

PATIENT
  Age: 3 Year
  Sex: Female
  Weight: 8.7 kg

DRUGS (10)
  1. ORAL REHYDRATION SALT [Concomitant]
     Dosage: UNK (VARIES)
     Dates: start: 20181217
  2. COTRIMOXAZOLE [Concomitant]
     Active Substance: SULFAMETHOXAZOLE\TRIMETHOPRIM
     Dosage: 120 MG, QD
     Dates: start: 20180418, end: 20190213
  3. COTRIMOXAZOLE [Concomitant]
     Active Substance: SULFAMETHOXAZOLE\TRIMETHOPRIM
     Dosage: 240 MG
     Dates: start: 20180830
  4. MEBENDAZOLE. [Concomitant]
     Active Substance: MEBENDAZOLE
     Dosage: 250 MG, QD
     Dates: start: 20190214, end: 20190214
  5. ZINC SULFATE. [Concomitant]
     Active Substance: ZINC SULFATE
     Dosage: 20 MG, QD
     Dates: start: 20181217, end: 20181227
  6. FERROUS SULPHATE AND FOLIC ACID [Concomitant]
     Active Substance: FERROUS SULFATE\FOLIC ACID
     Route: 064
  7. NEVIRAPINE SYRUP [Concomitant]
     Dosage: 1.5 ML, QD
     Dates: start: 20180308, end: 20180419
  8. COTRIMOXAZOLE [Concomitant]
     Active Substance: SULFAMETHOXAZOLE\TRIMETHOPRIM
     Dosage: 240 MG, QD
     Dates: start: 20190214, end: 20190510
  9. VITAMIN A [Concomitant]
     Active Substance: VITAMIN A
     Dosage: 100000 IU, QD
     Dates: start: 20190214, end: 20190214
  10. DOLUTEGRAVIR [Suspect]
     Active Substance: DOLUTEGRAVIR
     Indication: HIV INFECTION
     Dosage: 50 MG, QD
     Route: 064
     Dates: start: 20180215

REACTIONS (1)
  - Congenital umbilical hernia [Not Recovered/Not Resolved]

NARRATIVE: CASE EVENT DATE: 20180308
